FAERS Safety Report 6370270-1 (Version None)
Quarter: 2009Q3

REPORT INFORMATION
  Report Type: 
  Country: None (occurrence: None)
  Receive Date: 20090921
  Receipt Date: 20090921
  Transmission Date: 20100115
  Serious: Yes (Other)
  Sender: FDA-Public Use
  Company Number: None

PATIENT
  Sex: Male
  Weight: 52.6173 kg

DRUGS (2)
  1. AMPHETAMINE AND DEXTROAMPHETAMINE SALTS [Suspect]
     Indication: ATTENTION DEFICIT/HYPERACTIVITY DISORDER
     Dosage: 10MG 1 X DAILY ORAL
     Route: 048
     Dates: start: 20090825
  2. AMPHETAMINE AND DEXTROAMPHETAMINE SALTS [Suspect]
     Indication: ATTENTION DEFICIT/HYPERACTIVITY DISORDER
     Dosage: 10MG 1 X DAILY ORAL
     Route: 048
     Dates: start: 20090910

REACTIONS (4)
  - AGGRESSION [None]
  - ANGER [None]
  - IRRITABILITY [None]
  - MOOD SWINGS [None]
